FAERS Safety Report 9807355 (Version 1)
Quarter: 2014Q1

REPORT INFORMATION
  Report Type: Spontaneous
  Country: JP (occurrence: JP)
  Receive Date: 20140110
  Receipt Date: 20140110
  Transmission Date: 20141002
  Serious: Yes (Other)
  Sender: FDA-Public Use
  Company Number: JP-009507513-1401JPN003765

PATIENT
  Sex: 0

DRUGS (2)
  1. EZETIMIBE [Suspect]
     Indication: DYSLIPIDAEMIA
     Dosage: 10 MG/DAY
     Route: 048
  2. BEZAFIBRATE [Suspect]
     Indication: DYSLIPIDAEMIA
     Dosage: 400 MG/DAY

REACTIONS (1)
  - Gastric cancer [Recovered/Resolved]
